FAERS Safety Report 9892270 (Version 3)
Quarter: 2014Q2

REPORT INFORMATION
  Report Type: Spontaneous
  Country: JP (occurrence: JP)
  Receive Date: 20140212
  Receipt Date: 20140430
  Transmission Date: 20141212
  Serious: Yes (Other)
  Sender: FDA-Public Use
  Company Number: JP-PFIZER INC-2014040086

PATIENT
  Sex: Female

DRUGS (3)
  1. LYRICA [Suspect]
     Dosage: UNK
     Route: 048
     Dates: start: 201401
  2. CALONAL [Concomitant]
     Dosage: UNK
  3. AMARYL [Concomitant]
     Route: 048

REACTIONS (2)
  - Fall [Recovered/Resolved]
  - Blood glucose decreased [Recovered/Resolved]
